FAERS Safety Report 6651306-7 (Version None)
Quarter: 2010Q1

REPORT INFORMATION
  Report Type: 
  Country: None (occurrence: None)
  Receive Date: 20100325
  Receipt Date: 20100316
  Transmission Date: 20100710
  Serious: Yes (Other)
  Sender: FDA-Public Use
  Company Number: JP-BRISTOL-MYERS SQUIBB COMPANY-14869648

PATIENT
  Age: 72 Year
  Sex: Male

DRUGS (4)
  1. ERBITUX [Suspect]
     Indication: COLON CANCER
     Dosage: DOSE REDUCED TO 370MG SINCE 2DEC2009
     Route: 042
     Dates: start: 20091110, end: 20091110
  2. IRINOTECAN HCL [Concomitant]
     Indication: COLON CANCER
     Route: 042
     Dates: start: 20091110, end: 20091110
  3. CHLOR-TRIMETON [Concomitant]
     Indication: PREMEDICATION
     Dosage: 1DF-AMPULE
     Route: 042
     Dates: start: 20091110
  4. DECADRON [Concomitant]
     Indication: PREMEDICATION
     Route: 042
     Dates: start: 20091110

REACTIONS (1)
  - VISUAL ACUITY REDUCED [None]
